FAERS Safety Report 17100595 (Version 1)
Quarter: 2019Q4

REPORT INFORMATION
  Report Type: Spontaneous
  Country: US (occurrence: US)
  Receive Date: 20191202
  Receipt Date: 20191202
  Transmission Date: 20200122
  Serious: No
  Sender: FDA-Public Use
  Company Number: US-JNJFOC-20191146036

PATIENT
  Age: 29 Year
  Sex: Male
  Weight: 68.1 kg

DRUGS (1)
  1. TREMFYA [Suspect]
     Active Substance: GUSELKUMAB
     Indication: PSORIASIS
     Route: 058
     Dates: start: 2019

REACTIONS (4)
  - Product dose omission [Unknown]
  - Product complaint [Unknown]
  - Medication error [Unknown]
  - Pruritus [Unknown]

NARRATIVE: CASE EVENT DATE: 20191126
